FAERS Safety Report 13076715 (Version 4)
Quarter: 2018Q1

REPORT INFORMATION
  Report Type: Report from Study
  Country: IL (occurrence: IL)
  Receive Date: 20161230
  Receipt Date: 20180105
  Transmission Date: 20180508
  Serious: Yes (Hospitalization)
  Sender: FDA-Public Use
  Company Number: IL-BIOGEN-2016BI00336973

PATIENT
  Sex: Female

DRUGS (3)
  1. TYSABRI [Suspect]
     Active Substance: NATALIZUMAB
     Indication: MULTIPLE SCLEROSIS
     Route: 042
     Dates: start: 201406, end: 201506
  2. CIPRAMIL [Concomitant]
     Active Substance: CITALOPRAM HYDROBROMIDE
     Indication: PRODUCT USED FOR UNKNOWN INDICATION
     Route: 065
  3. TYSABRI [Suspect]
     Active Substance: NATALIZUMAB
     Route: 042
     Dates: start: 201606

REACTIONS (6)
  - Asthenia [Unknown]
  - Perinatal depression [Not Recovered/Not Resolved]
  - Insomnia [Unknown]
  - Drug withdrawal syndrome [Unknown]
  - Bronchitis [Unknown]
  - Head discomfort [Unknown]

NARRATIVE: CASE EVENT DATE: 201607
